FAERS Safety Report 7206746-4 (Version None)
Quarter: 2011Q1

REPORT INFORMATION
  Report Type: 
  Country: None (occurrence: None)
  Receive Date: 20110103
  Receipt Date: 20101230
  Transmission Date: 20110831
  Serious: Yes (Life-Threatening)
  Sender: FDA-Public Use
  Company Number: IT-PFIZER INC-2010176193

PATIENT
  Age: 31 Year
  Sex: Female

DRUGS (1)
  1. UNASYN [Suspect]
     Indication: ANTIBIOTIC PROPHYLAXIS
     Dosage: 1.5 G, UNK
     Route: 042
     Dates: start: 20101210, end: 20101210

REACTIONS (4)
  - FACE OEDEMA [None]
  - DYSPNOEA [None]
  - BRONCHOSPASM [None]
  - RASH GENERALISED [None]
